FAERS Safety Report 16051899 (Version 2)
Quarter: 2019Q2

REPORT INFORMATION
  Report Type: Spontaneous
  Country: IL (occurrence: IL)
  Receive Date: 20190308
  Receipt Date: 20190408
  Transmission Date: 20190711
  Serious: Yes (Hospitalization, Other)
  Sender: FDA-Public Use
  Company Number: IL-PFIZER INC-2019097144

PATIENT
  Age: 55 Year
  Sex: Male

DRUGS (5)
  1. LYRICA [Suspect]
     Active Substance: PREGABALIN
     Dosage: UNK
  2. LYRICA [Suspect]
     Active Substance: PREGABALIN
     Dosage: 75 MG, 2X/DAY
  3. TRIBEMIN [Suspect]
     Active Substance: CYANOCOBALAMIN\PYRIDOXINE HYDROCHLORIDE\THIAMINE
     Dosage: 1 DF, 1X/DAY
  4. THIAMINE. [Suspect]
     Active Substance: THIAMINE
     Dosage: 100 MG, 1X/DAY
  5. RENVELA [Suspect]
     Active Substance: SEVELAMER CARBONATE
     Dosage: 800 MG, 6X/DAY

REACTIONS (6)
  - Overdose [Unknown]
  - Polyneuropathy [Unknown]
  - Inappropriate schedule of product administration [Unknown]
  - Diplopia [Recovered/Resolved]
  - Myasthenia gravis [Unknown]
  - Nystagmus [Recovered/Resolved]
